FAERS Safety Report 9496815 (Version 2)
Quarter: 2015Q3

REPORT INFORMATION
  Report Type: Spontaneous
  Country: US (occurrence: US)
  Receive Date: 20130904
  Receipt Date: 20150921
  Transmission Date: 20151125
  Serious: Yes (Other)
  Sender: FDA-Public Use
  Company Number: US-PFIZER INC-2013251599

PATIENT
  Age: 20 Year
  Sex: Female

DRUGS (1)
  1. IBUPROFEN. [Suspect]
     Active Substance: IBUPROFEN
     Indication: DYSMENORRHOEA
     Dosage: UNSPECIFIED, AS NEEDED FOR 3 CONSECUTIVE DAYS
     Route: 065

REACTIONS (1)
  - Erythema multiforme [Recovered/Resolved]
